FAERS Safety Report 24538048 (Version 1)
Quarter: 2024Q4

REPORT INFORMATION
  Report Type: Spontaneous
  Country: ES (occurrence: ES)
  Receive Date: 20241023
  Receipt Date: 20241023
  Transmission Date: 20250114
  Serious: Yes (Other)
  Sender: SANDOZ
  Company Number: ES-NOVPHSZ-PHHY2019ES106467

PATIENT
  Age: 57 Year
  Sex: Female

DRUGS (1)
  1. MOXIFLOXACIN [Suspect]
     Active Substance: MOXIFLOXACIN
     Indication: Pneumonia
     Dosage: UNK
     Route: 048
     Dates: start: 201707, end: 2017

REACTIONS (2)
  - Intraocular pressure increased [Unknown]
  - Iris hypopigmentation [Not Recovered/Not Resolved]

NARRATIVE: CASE EVENT DATE: 20170901
